FAERS Safety Report 13859866 (Version 1)
Quarter: 2017Q3

REPORT INFORMATION
  Report Type: Report from Study
  Country: CA (occurrence: CA)
  Receive Date: 20170811
  Receipt Date: 20170811
  Transmission Date: 20171127
  Serious: Yes (Other)
  Sender: FDA-Public Use
  Company Number: CA-REGENERON PHARMACEUTICALS, INC.-2017-20081

PATIENT

DRUGS (2)
  1. EYLEA [Suspect]
     Active Substance: AFLIBERCEPT
     Indication: DIABETIC RETINAL OEDEMA
     Dosage: DOSE AND FREQUENCY NOT REPORTED. TOTAL NUMBER OF DOSES RECEIVED UNSPECIFIED.
  2. EYLEA [Suspect]
     Active Substance: AFLIBERCEPT
     Dosage: LAST DOSE PRIOR THE EVENT.
     Dates: start: 20170802, end: 20170802

REACTIONS (1)
  - Blindness transient [Recovering/Resolving]

NARRATIVE: CASE EVENT DATE: 201708
